FAERS Safety Report 8906182 (Version 1)
Quarter: 2012Q4

REPORT INFORMATION
  Report Type: Spontaneous
  Country: US (occurrence: None)
  Receive Date: 20121112
  Receipt Date: 20121112
  Transmission Date: 20130627
  Serious: Yes (Disabling, Other)
  Sender: FDA-Public Use
  Company Number: None

PATIENT
  Age: 43 Year
  Sex: Female
  Weight: 52.16 kg

DRUGS (1)
  1. ESCITALOPRAM [Suspect]
     Indication: IRRITABLE BOWEL SYNDROME
     Dates: start: 2012

REACTIONS (3)
  - Glossitis [None]
  - Mastication disorder [None]
  - Dysphagia [None]
